FAERS Safety Report 18349873 (Version 1)
Quarter: 2020Q4

REPORT INFORMATION
  Report Type: Spontaneous
  Country: US (occurrence: US)
  Receive Date: 20201006
  Receipt Date: 20201006
  Transmission Date: 20210114
  Serious: Yes (Other)
  Sender: FDA-Public Use
  Company Number: US-AMNEAL PHARMACEUTICALS-2020-AMRX-03077

PATIENT
  Age: 18 Year
  Sex: Female

DRUGS (1)
  1. CETIRIZINE [Suspect]
     Active Substance: CETIRIZINE HYDROCHLORIDE
     Indication: ABDOMINAL PAIN
     Dosage: 10 MILLIGRAM, 10-16 TABLETS
     Route: 048

REACTIONS (3)
  - Intentional product misuse [Unknown]
  - Intentional overdose [Unknown]
  - Methaemoglobinaemia [Unknown]
